FAERS Safety Report 5806519-0 (Version None)
Quarter: 2008Q3

REPORT INFORMATION
  Report Type: 
  Country: None (occurrence: None)
  Receive Date: 20080708
  Receipt Date: 20080630
  Transmission Date: 20090109
  Serious: Yes (Hospitalization)
  Sender: FDA-Public Use
  Company Number: 2006SP007561

PATIENT
  Age: 45 Year
  Sex: Male
  Weight: 81.4 kg

DRUGS (3)
  1. PEG-INTRON [Suspect]
     Indication: HEPATITIS C
     Dosage: 135 MCG; QW; SC
     Route: 058
     Dates: start: 20061018
  2. REBETOL [Suspect]
     Indication: HEPATITIS C
     Dosage: 1000 MG MG; QD; PO
     Route: 048
     Dates: start: 20061018
  3. CIPRAMIL /00582602/ [Concomitant]

REACTIONS (3)
  - ABASIA [None]
  - SEROTONIN SYNDROME [None]
  - TARDIVE DYSKINESIA [None]
